FAERS Safety Report 5726344-9 (Version None)
Quarter: 2008Q2

REPORT INFORMATION
  Report Type: 
  Country: None (occurrence: None)
  Receive Date: 20080502
  Receipt Date: 20080428
  Transmission Date: 20081010
  Serious: Yes (Hospitalization)
  Sender: FDA-Public Use
  Company Number: MX-BAYER-200813545LA

PATIENT
  Sex: Female

DRUGS (1)
  1. BETAFERON [Suspect]
     Indication: MULTIPLE SCLEROSIS
     Route: 058
     Dates: start: 20080301

REACTIONS (6)
  - DRY MOUTH [None]
  - HEADACHE [None]
  - LIVER DISORDER [None]
  - MOUTH HAEMORRHAGE [None]
  - THROMBOCYTOPENIA [None]
  - TREMOR [None]
